FAERS Safety Report 4988282-9 (Version None)
Quarter: 2006Q2

REPORT INFORMATION
  Report Type: 
  Country: None (occurrence: None)
  Receive Date: 20060425
  Receipt Date: 20060411
  Transmission Date: 20061013
  Serious: Yes (Hospitalization)
  Sender: FDA-Public Use
  Company Number: 2006040982

PATIENT
  Age: 50 Year
  Sex: Female
  Weight: 60 kg

DRUGS (3)
  1. SERTRALINE [Suspect]
     Indication: DEPRESSION
     Dosage: 50 MG (50 MG, 2 IN 1 D), ORAL
     Route: 048
  2. OLANZAPINE [Suspect]
     Indication: DEPRESSION
     Dosage: 2.5 MG (2.5 MG, 1 IN 1 D),
  3. OMEPRAZOLE [Concomitant]

REACTIONS (6)
  - BLOOD ALBUMIN DECREASED [None]
  - FALL [None]
  - HAEMODIALYSIS [None]
  - LOSS OF CONSCIOUSNESS [None]
  - RESPIRATORY DISORDER [None]
  - SUBARACHNOID HAEMORRHAGE [None]
